FAERS Safety Report 10211708 (Version 1)
Quarter: 2014Q2

REPORT INFORMATION
  Report Type: Spontaneous
  Country: US (occurrence: US)
  Receive Date: 20140602
  Receipt Date: 20140602
  Transmission Date: 20141212
  Serious: No
  Sender: FDA-Public Use
  Company Number: US-GILEAD-2014-0103891

PATIENT
  Age: 56 Year
  Sex: Female

DRUGS (14)
  1. LETAIRIS [Suspect]
     Indication: PULMONARY HYPERTENSION
     Dates: start: 20140303
  2. SILDENAFIL [Concomitant]
  3. HYDROCODONE [Concomitant]
  4. MIRAPEX [Concomitant]
  5. LIPITOR [Concomitant]
  6. GABAPENTIN [Concomitant]
  7. METFORMIN [Concomitant]
  8. OXYBUTYNIN [Concomitant]
  9. PROTONIX [Concomitant]
  10. PAXIL                              /00500401/ [Concomitant]
  11. ALLOPURINOL [Concomitant]
  12. WARFARIN [Concomitant]
  13. LOSARTAN [Concomitant]
  14. CHLORTHALIDONE [Concomitant]

REACTIONS (1)
  - Oedema peripheral [Not Recovered/Not Resolved]
